FAERS Safety Report 6894772-4 (Version None)
Quarter: 2010Q3

REPORT INFORMATION
  Report Type: 
  Country: None (occurrence: None)
  Receive Date: 20100730
  Receipt Date: 20100730
  Transmission Date: 20110219
  Serious: Yes (Life-Threatening, Hospitalization)
  Sender: FDA-Public Use
  Company Number: None

PATIENT
  Age: 36 Year
  Sex: Female
  Weight: 65.7716 kg

DRUGS (17)
  1. CIMZIA [Suspect]
     Indication: ANKYLOSING SPONDYLITIS
     Dosage: 400 MG MONTH SUBQ
     Route: 058
     Dates: start: 20091028
  2. CIMZIA [Suspect]
     Indication: RHEUMATOID ARTHRITIS
     Dosage: 400 MG MONTH SUBQ
     Route: 058
     Dates: start: 20091028
  3. SIMPONI [Suspect]
     Indication: RHEUMATOID ARTHRITIS
     Dosage: 500 MG MONTH SUBQ
     Route: 058
     Dates: start: 20090201, end: 20091028
  4. REMICADE [Suspect]
     Indication: RHEUMATOID ARTHRITIS
     Dosage: VARIABLE 2-4 WEEKS IV
     Dates: start: 20060622, end: 20070526
  5. ENBREL 50MG Q WEEK [Suspect]
     Indication: RHEUMATOID ARTHRITIS
     Dosage: WEEKLY SQ
     Route: 058
     Dates: start: 20060510, end: 20060622
  6. HUMIRA [Suspect]
     Dosage: BIWEEKLY SQ
     Route: 058
     Dates: start: 20070526, end: 20081201
  7. ORENCIA 500MG [Suspect]
     Dosage: ONE DOSE IV
     Route: 042
     Dates: start: 20080529, end: 20080601
  8. HYDROCHLOROTHIAZIDE [Concomitant]
  9. ZYRTEC [Concomitant]
  10. LISINOPRIL [Concomitant]
  11. NUVIGIL [Concomitant]
  12. PLAQUENIL [Concomitant]
  13. NEXIUM [Concomitant]
  14. PREDNISONE [Concomitant]
  15. LORTAB [Concomitant]
  16. METHADONE HCL [Concomitant]
  17. ACTONEL [Concomitant]

REACTIONS (1)
  - ANAPLASTIC LARGE CELL LYMPHOMA T- AND NULL-CELL TYPES [None]
